FAERS Safety Report 8181150-3 (Version None)
Quarter: 2012Q1

REPORT INFORMATION
  Report Type: 
  Country: None (occurrence: None)
  Receive Date: 20120302
  Receipt Date: 20110606
  Transmission Date: 20120608
  Serious: Yes (Other)
  Sender: FDA-Public Use
  Company Number: US-GLAXOSMITHKLINE-A0932389A

PATIENT
  Sex: Male

DRUGS (1)
  1. AVANDIA [Suspect]
     Indication: DIABETES MELLITUS
     Dosage: 4MG TWICE PER DAY
     Route: 048
     Dates: end: 20110201

REACTIONS (7)
  - MYOCARDIAL INFARCTION [None]
  - SURGERY [None]
  - DIZZINESS [None]
  - MUSCULAR WEAKNESS [None]
  - STENT PLACEMENT [None]
  - CEREBROVASCULAR ACCIDENT [None]
  - FALL [None]
